FAERS Safety Report 4551687-4 (Version None)
Quarter: 2005Q1

REPORT INFORMATION
  Report Type: 
  Country: None (occurrence: None)
  Receive Date: 20050111
  Receipt Date: 20041229
  Transmission Date: 20050727
  Serious: Yes (Other)
  Sender: FDA-Public Use
  Company Number: 430007N04FRA

PATIENT
  Age: 35 Year
  Sex: Female

DRUGS (9)
  1. MITOXANTRONE [Suspect]
     Indication: MULTIPLE SCLEROSIS
     Dosage: 16.03 MG, 1 IN 1 CYCLE, INTRAVENOUS
     Route: 042
     Dates: start: 20041112, end: 20041112
  2. SMECTITE [Concomitant]
  3. HYDROXYZINE HYDROCHLORIDE [Concomitant]
  4. ZOPICLONE [Concomitant]
  5. CLONAZEPAM [Concomitant]
  6. LOPERAMIDE HCL [Concomitant]
  7. DOMPERIDONE [Concomitant]
  8. ESOMEPRAZOLE [Concomitant]
  9. INDORAMIN [Concomitant]

REACTIONS (1)
  - NEUTROPENIA [None]
